FAERS Safety Report 9652127 (Version 3)
Quarter: 2013Q4

REPORT INFORMATION
  Report Type: Other
  Country: DE (occurrence: JP)
  Receive Date: 20131029
  Receipt Date: 20131216
  Transmission Date: 20140711
  Serious: No
  Sender: FDA-Public Use
  Company Number: JP-FRI-1000050550

PATIENT
  Age: 98 Year
  Sex: Female

DRUGS (9)
  1. MEMANTINE [Suspect]
     Indication: DEMENTIA
     Dosage: 5 MG
     Route: 048
     Dates: start: 20111221, end: 20111223
  2. MEMANTINE [Suspect]
     Indication: DEMENTIA
     Dosage: 10 MG
     Dates: start: 20111224, end: 20111226
  3. VESICARE OD [Concomitant]
     Indication: HYPERTONIC BLADDER
     Dosage: 5 MG
     Route: 048
  4. PLETAAL [Concomitant]
     Indication: CEREBRAL INFARCTION
     Dosage: 200 MG
     Route: 048
  5. TETRAMIDE [Concomitant]
     Indication: DEMENTIA
     Dosage: 5 MG
     Route: 048
     Dates: start: 20111129
  6. BLOPRESS [Concomitant]
     Indication: HYPERTENSION
     Dosage: 8 MG
     Route: 048
  7. AMLODIN OD [Concomitant]
     Indication: HYPERTENSION
     Dosage: 5 MG
     Route: 048
  8. ARTIST [Concomitant]
     Indication: HYPERTENSION
     Dosage: 1.25 MG
     Route: 048
  9. FUROSEMIDE [Concomitant]
     Indication: RENAL FAILURE CHRONIC
     Dosage: 20 MG
     Route: 048
     Dates: start: 20111218

REACTIONS (1)
  - Hyperkalaemia [Recovered/Resolved]
